FAERS Safety Report 5063877-5 (Version None)
Quarter: 2006Q3

REPORT INFORMATION
  Report Type: 
  Country: None (occurrence: None)
  Receive Date: 20060727
  Receipt Date: 20060717
  Transmission Date: 20061208
  Serious: Yes (Death, Hospitalization)
  Sender: FDA-Public Use
  Company Number: DE-ABBOTT-06P-062-0338296-00

PATIENT
  Sex: Female

DRUGS (5)
  1. ZEMPLAR [Suspect]
     Indication: HYPERPARATHYROIDISM SECONDARY
     Route: 042
     Dates: start: 20060701, end: 20060707
  2. MIMPARA [Concomitant]
     Indication: HYPERPARATHYROIDISM SECONDARY
     Dates: end: 20060701
  3. AZATHIOPRINE SODIUM [Concomitant]
     Indication: MYASTHENIA GRAVIS
     Dates: end: 20060716
  4. CORTICOSTEROIDS [Concomitant]
     Indication: MYASTHENIA GRAVIS
     Dates: end: 20060716
  5. PHENPROCOUMON [Concomitant]
     Indication: ATRIAL FIBRILLATION
     Dates: end: 20060701

REACTIONS (13)
  - BACK PAIN [None]
  - BLOOD CREATINE PHOSPHOKINASE INCREASED [None]
  - BLOOD PRESSURE DECREASED [None]
  - CALCIPHYLAXIS [None]
  - CARDIOPULMONARY FAILURE [None]
  - GENERAL PHYSICAL HEALTH DETERIORATION [None]
  - HEART RATE DECREASED [None]
  - MENTAL DISORDER DUE TO A GENERAL MEDICAL CONDITION [None]
  - MUSCLE NECROSIS [None]
  - NECROSIS [None]
  - OEDEMA PERIPHERAL [None]
  - SKIN NECROSIS [None]
  - TRANSAMINASES INCREASED [None]
